FAERS Safety Report 7067840-4 (Version None)
Quarter: 2010Q4

REPORT INFORMATION
  Report Type: 
  Country: None (occurrence: None)
  Receive Date: 20101028
  Receipt Date: 20101018
  Transmission Date: 20110411
  Serious: Yes (Other)
  Sender: FDA-Public Use
  Company Number: BE-PFIZER INC-2010125252

PATIENT
  Age: 71 Year
  Sex: Male
  Weight: 88 kg

DRUGS (7)
  1. ESTRACYT [Suspect]
     Indication: PROSTATE CANCER
     Dosage: 140 MG, 2X/DAY
     Route: 048
     Dates: start: 20100730, end: 20100928
  2. EMCONCOR [Concomitant]
     Dosage: UNK
     Route: 048
  3. DITROPAN [Concomitant]
     Dosage: UNK
     Route: 048
  4. CAPTOPRIL [Concomitant]
     Dosage: UNK
     Route: 048
  5. ASAFLOW [Concomitant]
     Dosage: UNK
     Route: 048
  6. LIPITOR [Concomitant]
     Route: 048
  7. CASODEX [Concomitant]
     Dosage: UNK
     Route: 048
     Dates: start: 20101001

REACTIONS (5)
  - ANXIETY [None]
  - CONFUSIONAL STATE [None]
  - DEPRESSION [None]
  - HEADACHE [None]
  - INSOMNIA [None]
